FAERS Safety Report 10815148 (Version 1)
Quarter: 2015Q1

REPORT INFORMATION
  Report Type: Spontaneous
  Country: GB (occurrence: GB)
  Receive Date: 20150218
  Receipt Date: 20150218
  Transmission Date: 20150721
  Serious: Yes (Hospitalization)
  Sender: FDA-Public Use
  Company Number: GB-PFIZER INC-2015055036

PATIENT
  Age: 69 Year
  Sex: Female
  Weight: 102 kg

DRUGS (7)
  1. LINEZOLID. [Suspect]
     Active Substance: LINEZOLID
     Indication: CELLULITIS
     Dosage: 600 MG, 2X/DAY
     Route: 042
     Dates: start: 20140808, end: 20140816
  2. VIDAZA [Suspect]
     Active Substance: AZACITIDINE
     Dosage: UNK
  3. ZARZIO [Concomitant]
     Active Substance: FILGRASTIM
     Indication: NEUTROPENIC SEPSIS
     Dosage: 3 G, UNK
     Route: 058
     Dates: start: 20140802, end: 20140812
  4. TEICOPLANIN [Suspect]
     Active Substance: TEICOPLANIN
     Indication: CELLULITIS
     Dosage: 800 MG, 1X/DAY
     Route: 041
     Dates: start: 20140806, end: 20140808
  5. GENTAMICIN. [Concomitant]
     Active Substance: GENTAMICIN
     Indication: NEUTROPENIC SEPSIS
     Dosage: 320 MG, 1X/DAY
     Route: 041
     Dates: start: 20140802, end: 20140803
  6. AMIKACIN [Concomitant]
     Active Substance: AMIKACIN
     Indication: NEUTROPENIC SEPSIS
     Dosage: 1 G, 1X/DAY
     Route: 041
     Dates: start: 20140804, end: 20140812
  7. MEROPENEM. [Concomitant]
     Active Substance: MEROPENEM
     Indication: NEUTROPENIC SEPSIS
     Dosage: 1 G, 3X/DAY
     Route: 041
     Dates: start: 20140804, end: 20140816

REACTIONS (1)
  - Cellulitis [Recovered/Resolved]

NARRATIVE: CASE EVENT DATE: 201408
